FAERS Safety Report 5367585-2 (Version None)
Quarter: 2007Q2

REPORT INFORMATION
  Report Type: 
  Country: None (occurrence: None)
  Receive Date: 20070622
  Receipt Date: 20070612
  Transmission Date: 20071010
  Serious: Yes (Hospitalization)
  Sender: FDA-Public Use
  Company Number: US-SANOFI-SYNTHELABO-A03200701943

PATIENT
  Sex: Male

DRUGS (20)
  1. ZOCOR [Concomitant]
     Dosage: UNK
     Route: 048
  2. LISINOPRIL [Concomitant]
     Dosage: UNK
     Route: 048
  3. FOLIC ACID [Concomitant]
     Route: 048
  4. SENNA-LAX [Concomitant]
     Dosage: UNK
     Route: 048
  5. MULTIVITAMIN [Concomitant]
     Dosage: UNK
     Route: 048
  6. OMEPRAZOLE [Concomitant]
     Dosage: UNK
     Route: 048
  7. ASPIRIN [Concomitant]
     Route: 048
  8. TERAZOSIN HCL [Concomitant]
     Dosage: UNK
     Route: 048
  9. FOSAMAX [Concomitant]
     Route: 048
  10. ACULAR [Concomitant]
     Dosage: UNK
     Route: 047
  11. COSOPT [Concomitant]
     Dosage: UNK
     Route: 047
  12. TRAZODONE HCL [Concomitant]
     Dosage: UNK
     Route: 048
  13. AMBIEN [Concomitant]
     Dosage: UNK
     Route: 048
  14. KLONOPIN [Concomitant]
     Dosage: UNK
     Route: 048
  15. PLAVIX [Suspect]
     Indication: TRANSIENT ISCHAEMIC ATTACK
     Route: 048
     Dates: start: 20070206, end: 20070211
  16. PLAVIX [Suspect]
     Indication: HEADACHE
     Route: 048
     Dates: start: 20070206, end: 20070211
  17. FLOMAX [Concomitant]
     Route: 048
  18. NORVASC [Concomitant]
     Route: 048
  19. PERCOCET [Concomitant]
     Dosage: UNK
     Route: 048
  20. ULTRAM [Concomitant]
     Dosage: 50 MG DAILY AS NEEDED
     Route: 048

REACTIONS (8)
  - CHEST PAIN [None]
  - DIZZINESS [None]
  - FALL [None]
  - HYPERSENSITIVITY [None]
  - HYPERTENSION [None]
  - HYPONATRAEMIA [None]
  - LOSS OF CONSCIOUSNESS [None]
  - PAIN [None]
